FAERS Safety Report 4511768-8 (Version None)
Quarter: 2004Q4

REPORT INFORMATION
  Report Type: 
  Country: None (occurrence: None)
  Receive Date: 20041124
  Receipt Date: 20041020
  Transmission Date: 20050328
  Serious: Yes (Hospitalization)
  Sender: FDA-Public Use
  Company Number: PHRM2004FR03149

PATIENT
  Age: 85 Year
  Sex: Female
  Weight: 70 kg

DRUGS (7)
  1. TAREG [Suspect]
     Indication: HYPERTENSION
     Dosage: 80 MG, QD
     Route: 048
     Dates: end: 20041015
  2. GLUCOR [Suspect]
     Dosage: 1 DF, BID
     Route: 048
     Dates: end: 20041015
  3. ZYLORIC [Concomitant]
     Route: 048
     Dates: end: 20041019
  4. LERCAN [Concomitant]
     Dosage: 10 MG, QD
     Route: 048
  5. CORDARONE [Concomitant]
     Dosage: 200 MG, QD
     Route: 048
  6. EUPRESSYL [Concomitant]
     Route: 048
  7. PREVISCAN [Concomitant]
     Dosage: 10 MG, QD
     Route: 048

REACTIONS (12)
  - AGRANULOCYTOSIS [None]
  - BLOOD CREATININE INCREASED [None]
  - C-REACTIVE PROTEIN INCREASED [None]
  - CREATININE RENAL CLEARANCE DECREASED [None]
  - DYSPNOEA [None]
  - HYPOCHROMIC ANAEMIA [None]
  - HYPOXIA [None]
  - INFLAMMATION [None]
  - LUNG DISORDER [None]
  - LYMPHOPENIA [None]
  - PYREXIA [None]
  - TRANSAMINASES INCREASED [None]
